FAERS Safety Report 20884875 (Version 4)
Quarter: 2023Q1

REPORT INFORMATION
  Report Type: Report from Study
  Country: US (occurrence: US)
  Receive Date: 20220527
  Receipt Date: 20230324
  Transmission Date: 20230417
  Serious: Yes (Hospitalization, Other)
  Sender: FDA-Public Use
  Company Number: US-TAKEDA-2022TUS024454

PATIENT
  Sex: Female
  Weight: 75 kg

DRUGS (15)
  1. PONATINIB [Suspect]
     Active Substance: PONATINIB
     Indication: Metastases to liver
     Dosage: 15 MILLIGRAM, QD
     Route: 065
     Dates: start: 20220413
  2. PONATINIB [Suspect]
     Active Substance: PONATINIB
     Indication: Cholangiocarcinoma
     Dosage: 30 MILLIGRAM, QD
     Route: 048
     Dates: start: 20220519
  3. PONATINIB [Suspect]
     Active Substance: PONATINIB
     Indication: Renal cancer
     Dosage: 15 MILLIGRAM, BID
     Route: 065
  4. PONATINIB [Suspect]
     Active Substance: PONATINIB
     Indication: Lymphocytic leukaemia
  5. PONATINIB [Suspect]
     Active Substance: PONATINIB
     Indication: Acute lymphocytic leukaemia
  6. VENCLEXTA [Suspect]
     Active Substance: VENETOCLAX
     Indication: Acute lymphocytic leukaemia
     Dosage: 200 MILLIGRAM
     Route: 048
  7. VENCLEXTA [Suspect]
     Active Substance: VENETOCLAX
     Indication: Lymphocytic leukaemia
  8. OPDIVO [Concomitant]
     Active Substance: NIVOLUMAB
     Indication: Renal cancer
     Dosage: UNK
     Route: 065
  9. LEVOTHYROXINE [Concomitant]
     Active Substance: LEVOTHYROXINE
     Indication: Thyroid cancer
     Dosage: 125 MILLIGRAM
     Route: 065
  10. KLOR-CON [Concomitant]
     Active Substance: POTASSIUM CHLORIDE
     Dosage: UNK
     Route: 065
  11. ACYCLOVIR [Concomitant]
     Active Substance: ACYCLOVIR
     Dosage: UNK
     Route: 065
  12. YERVOY [Concomitant]
     Active Substance: IPILIMUMAB
     Indication: Radioimmunotherapy
     Dosage: UNK
     Route: 065
  13. FAMOTIDINE [Concomitant]
     Active Substance: FAMOTIDINE
     Dosage: UNK
     Route: 065
  14. PANTOPRAZOLE [Concomitant]
     Active Substance: PANTOPRAZOLE
     Dosage: UNK
     Route: 065
  15. MONTELUKAST [Concomitant]
     Active Substance: MONTELUKAST SODIUM
     Dosage: UNK
     Route: 065

REACTIONS (4)
  - Philadelphia chromosome positive [Unknown]
  - Acute myeloid leukaemia [Unknown]
  - Haemoglobin decreased [Unknown]
  - Off label use [Unknown]
